FAERS Safety Report 26207481 (Version 1)
Quarter: 2025Q4

REPORT INFORMATION
  Report Type: Spontaneous
  Country: US (occurrence: None)
  Receive Date: 20251224
  Receipt Date: 20251224
  Transmission Date: 20260119
  Serious: No
  Sender: FDA-CTU
  Company Number: None

PATIENT
  Age: 2 Year
  Sex: Male
  Weight: 8.7 kg

DRUGS (1)
  1. NORDITROPIN [Suspect]
     Active Substance: SOMATROPIN
     Indication: Small for dates baby
     Dosage: 0.4 MG DAILY SUBCUTANEOUS
     Route: 058
     Dates: start: 20251115, end: 20251122

REACTIONS (2)
  - Amblyopia [None]
  - Hypermetropia [None]

NARRATIVE: CASE EVENT DATE: 20251124
